FAERS Safety Report 20475615 (Version 6)
Quarter: 2022Q2

REPORT INFORMATION
  Report Type: Report from Study
  Country: MX (occurrence: MX)
  Receive Date: 20220215
  Receipt Date: 20220519
  Transmission Date: 20220721
  Serious: Yes (Death, Other)
  Sender: FDA-Public Use
  Company Number: MX-NOVARTISPH-NVSC2022MX034056

PATIENT
  Age: 78 Year
  Sex: Female
  Weight: 56 kg

DRUGS (2)
  1. KISQALI [Suspect]
     Active Substance: RIBOCICLIB
     Indication: Breast cancer
     Dosage: UNK
     Route: 048
     Dates: start: 202109
  2. KISQALI [Suspect]
     Active Substance: RIBOCICLIB
     Dosage: 600 MG, QD (WITH BREAKS OF 7 DAYS, CYCLE OF 28 DAYS) / OTHER
     Route: 048

REACTIONS (17)
  - Death [Fatal]
  - Liver disorder [Unknown]
  - Renal disorder [Unknown]
  - Diabetes mellitus [Unknown]
  - Metastases to bone [Unknown]
  - Anxiety [Unknown]
  - Adverse drug reaction [Unknown]
  - Decreased appetite [Not Recovered/Not Resolved]
  - Mobility decreased [Unknown]
  - Platelet count abnormal [Unknown]
  - Dysstasia [Unknown]
  - Device physical property issue [Unknown]
  - Nausea [Unknown]
  - Weight decreased [Unknown]
  - Feeling of despair [Unknown]
  - Amnesia [Unknown]
  - Gait disturbance [Not Recovered/Not Resolved]

NARRATIVE: CASE EVENT DATE: 20210901
